FAERS Safety Report 4530401-2 (Version None)
Quarter: 2004Q4

REPORT INFORMATION
  Report Type: 
  Country: None (occurrence: None)
  Receive Date: 20041215
  Receipt Date: 20041208
  Transmission Date: 20050328
  Serious: Yes (Hospitalization)
  Sender: FDA-Public Use
  Company Number: A001-319-705

PATIENT
  Age: 83 Year
  Sex: Male
  Weight: 74.5 kg

DRUGS (9)
  1. DONEPEZIL HCL [Suspect]
     Indication: VASCULAR DEMENTIA
     Dosage: 5 MG, 1 IN 1 D, ORAL
     Route: 048
     Dates: start: 20040830, end: 20040915
  2. CLOPIDOGREL (CLOPIDOGREL) [Concomitant]
  3. ACETYLSALICYLIC ACID SRT [Concomitant]
  4. LISINOPRIL [Concomitant]
  5. PAROXETINE HCL [Concomitant]
  6. HYDROCHLOROTHIAZIDE [Concomitant]
  7. MVI (MULTIVITAMINS) [Concomitant]
  8. FOLIC ACID [Concomitant]
  9. LOVASTATIN [Concomitant]

REACTIONS (4)
  - BACK PAIN [None]
  - COAGULOPATHY [None]
  - FALL [None]
  - MALLORY-WEISS SYNDROME [None]
